FAERS Safety Report 5347906-7 (Version None)
Quarter: 2007Q2

REPORT INFORMATION
  Report Type: 
  Country: None (occurrence: None)
  Receive Date: 20070606
  Receipt Date: 20070601
  Transmission Date: 20071010
  Serious: Yes (Congenital Anomaly)
  Sender: FDA-Public Use
  Company Number: A0642593A

PATIENT
  Sex: Male

DRUGS (1)
  1. LAMICTAL [Suspect]
     Indication: DRUG USE FOR UNKNOWN INDICATION

REACTIONS (4)
  - DRUG EXPOSURE DURING PREGNANCY [None]
  - DYSKINESIA [None]
  - NERVOUS SYSTEM DISORDER [None]
  - SEPTUM PELLUCIDUM AGENESIS [None]
